FAERS Safety Report 5832697-3 (Version None)
Quarter: 2008Q3

REPORT INFORMATION
  Report Type: 
  Country: None (occurrence: None)
  Receive Date: 20080804
  Receipt Date: 20080804
  Transmission Date: 20090109
  Serious: Yes (Death, Hospitalization)
  Sender: FDA-Public Use
  Company Number: PHEH2001US07214

PATIENT
  Sex: Male
  Weight: 106 kg

DRUGS (3)
  1. NEORAL [Suspect]
     Indication: HEART TRANSPLANT
     Route: 048
  2. RAD 666 RAD+ [Suspect]
     Indication: HEART TRANSPLANT
     Dosage: 1.5 MG, BID
     Route: 048
     Dates: start: 19990728, end: 20010501
  3. IMURAN [Concomitant]
     Indication: HEART TRANSPLANT

REACTIONS (5)
  - DYSPNOEA [None]
  - OEDEMA [None]
  - RENAL FAILURE ACUTE [None]
  - TRANSPLANT REJECTION [None]
  - VENTRICULAR TACHYCARDIA [None]
